FAERS Safety Report 11991028 (Version 1)
Quarter: 2016Q1

REPORT INFORMATION
  Report Type: Spontaneous
  Country: US (occurrence: US)
  Receive Date: 20160202
  Receipt Date: 20160202
  Transmission Date: 20160526
  Serious: No
  Sender: FDA-Public Use
  Company Number: US-009507513-1601USA007077

PATIENT
  Age: 63 Year
  Sex: Female

DRUGS (2)
  1. FIORINAL (ASPIRIN (+) BUTALBITAL (+) CAFFEINE) [Concomitant]
  2. ASMANEX [Suspect]
     Active Substance: MOMETASONE FUROATE
     Indication: ASTHMA
     Dosage: 220MCG/1 PUFF AT NIGHT
     Route: 055
     Dates: start: 200901

REACTIONS (2)
  - Weight decreased [Unknown]
  - Fatigue [Unknown]

NARRATIVE: CASE EVENT DATE: 200910
